FAERS Safety Report 20553928 (Version 1)
Quarter: 2022Q1

REPORT INFORMATION
  Report Type: Spontaneous
  Country: US (occurrence: None)
  Receive Date: 20220304
  Receipt Date: 20220304
  Transmission Date: 20220423
  Serious: Yes (Life-Threatening, Disabling, Other)
  Sender: FDA-Public Use
  Company Number: None

PATIENT
  Age: 34 Year
  Sex: Female

DRUGS (1)
  1. NITROFURANTOIN [Suspect]
     Active Substance: NITROFURANTOIN
     Indication: Urinary tract infection
     Dates: start: 20201006, end: 20201020

REACTIONS (11)
  - Hypoaesthesia [None]
  - Hypoaesthesia [None]
  - Malabsorption [None]
  - Head discomfort [None]
  - Ocular discomfort [None]
  - Heart rate increased [None]
  - Insomnia [None]
  - Dyspnoea [None]
  - Heat exhaustion [None]
  - Muscular weakness [None]
  - Nervous system disorder [None]

NARRATIVE: CASE EVENT DATE: 20201006
